FAERS Safety Report 8815252 (Version 2)
Quarter: 2013Q1

REPORT INFORMATION
  Report Type: Spontaneous
  Country: JP (occurrence: JP)
  Receive Date: 20120928
  Receipt Date: 20130320
  Transmission Date: 20140127
  Serious: Yes (Hospitalization)
  Sender: FDA-Public Use
  Company Number: JP-JNJFOC-20120708175

PATIENT
  Age: 37 Year
  Sex: Female

DRUGS (5)
  1. ITRIZOLE [Suspect]
     Indication: ANTIFUNGAL PROPHYLAXIS
     Route: 042
     Dates: start: 20120725, end: 20120725
  2. ITRIZOLE [Suspect]
     Indication: ANTIFUNGAL PROPHYLAXIS
     Route: 042
     Dates: start: 20120724, end: 20120724
  3. GEMZAR [Concomitant]
     Route: 041
  4. DOCETAXEL [Concomitant]
     Route: 042
     Dates: start: 20120725
  5. UNKNOWN MEDICATION [Concomitant]
     Route: 058

REACTIONS (2)
  - Febrile neutropenia [Recovered/Resolved]
  - Drug ineffective [Recovered/Resolved]
